FAERS Safety Report 8609016-2 (Version None)
Quarter: 2012Q3

REPORT INFORMATION
  Report Type: 
  Country: None (occurrence: None)
  Receive Date: 20120821
  Receipt Date: 20120815
  Transmission Date: 20120928
  Serious: Yes (Other)
  Sender: FDA-Public Use
  Company Number: JP-GLAXOSMITHKLINE-B0816192A

PATIENT
  Sex: Female

DRUGS (7)
  1. LAMICTAL [Suspect]
     Dosage: 120MG TWICE PER DAY
     Route: 048
     Dates: start: 20120707
  2. ONON [Concomitant]
     Indication: OBSTRUCTIVE AIRWAYS DISORDER
     Dosage: 200MG PER DAY
     Route: 048
     Dates: start: 20061201
  3. DEPAKENE [Concomitant]
     Indication: STATUS EPILEPTICUS
     Dosage: 12ML PER DAY
     Route: 048
     Dates: start: 20060905
  4. BACLOFEN [Concomitant]
     Indication: CEREBRAL PALSY
     Dosage: 40MG PER DAY
     Route: 048
     Dates: start: 20060803
  5. TRICLORYL [Concomitant]
     Indication: STATUS EPILEPTICUS
     Route: 048
     Dates: start: 20060426
  6. LAMICTAL [Suspect]
     Indication: STATUS EPILEPTICUS
     Dosage: 134MG PER DAY
     Route: 048
     Dates: end: 20120706
  7. PHENYTOIN SODIUM CAP [Concomitant]
     Indication: STATUS EPILEPTICUS
     Dosage: 120MG PER DAY
     Route: 048
     Dates: start: 20060629

REACTIONS (3)
  - TONIC CONVULSION [None]
  - BRADYCARDIA [None]
  - PULSE ABNORMAL [None]
